FAERS Safety Report 6417744-2 (Version None)
Quarter: 2009Q4

REPORT INFORMATION
  Report Type: 
  Country: None (occurrence: None)
  Receive Date: 20091027
  Receipt Date: 20091027
  Transmission Date: 20100525
  Serious: Yes (Hospitalization)
  Sender: FDA-Public Use
  Company Number: None

PATIENT
  Sex: Male
  Weight: 69 kg

DRUGS (2)
  1. LENALIDAMIDE [Suspect]
     Indication: HEPATIC NEOPLASM MALIGNANT
     Dosage: 25MG PO DAILY
     Route: 048
     Dates: start: 20090817
  2. LENALIDAMIDE [Suspect]
     Indication: HEPATIC NEOPLASM MALIGNANT
     Dosage: 25MG PO DAILY
     Route: 048
     Dates: start: 20091005

REACTIONS (2)
  - BILE DUCT STONE [None]
  - CHOLELITHIASIS [None]
